FAERS Safety Report 8644434 (Version 3)
Quarter: 2012Q4

REPORT INFORMATION
  Report Type: 
  Country: US (occurrence: US)
  Receive Date: 20120629
  Receipt Date: 20120923
  Transmission Date: 20130627
  Serious: Yes (Other)
  Sender: FDA-Public Use
  Company Number: US-ABBOTT-12P-163-0947974-00

PATIENT
  Age: 74 None
  Sex: Female
  Weight: 48.5 kg

DRUGS (5)
  1. BIAXIN [Suspect]
     Indication: PRODUCT USED FOR UNKNOWN INDICATION
     Dates: start: 201205
  2. DALIRESP [Suspect]
     Indication: CHRONIC OBSTRUCTIVE PULMONARY DISEASE
     Route: 048
     Dates: start: 201203
  3. ARMOUR THYROID [Concomitant]
     Indication: HYPOTHYROIDISM
  4. SPIRONOLACTONE [Concomitant]
     Indication: PRODUCT USED FOR UNKNOWN INDICATION
  5. TYLENOL [Concomitant]
     Indication: PRODUCT USED FOR UNKNOWN INDICATION

REACTIONS (4)
  - Skin cancer [Recovering/Resolving]
  - Paraesthesia [Recovered/Resolved]
  - Swelling face [Recovered/Resolved]
  - Nausea [Recovered/Resolved]
